FAERS Safety Report 25345443 (Version 7)
Quarter: 2025Q4

REPORT INFORMATION
  Report Type: Spontaneous
  Country: JP (occurrence: JP)
  Receive Date: 20250522
  Receipt Date: 20251113
  Transmission Date: 20260117
  Serious: Yes (Hospitalization, Other)
  Sender: ASTELLAS
  Company Number: JP-ASTELLAS-2025-AER-027036

PATIENT
  Age: 70 Year
  Sex: Female
  Weight: 65 kg

DRUGS (21)
  1. MIRABEGRON [Suspect]
     Active Substance: MIRABEGRON
     Indication: Hypertonic bladder
     Route: 048
  2. MIRABEGRON [Suspect]
     Active Substance: MIRABEGRON
     Route: 048
  3. MINODRONIC ACID [Suspect]
     Active Substance: MINODRONIC ACID
     Indication: Osteoporosis
     Route: 048
     Dates: start: 202207, end: 202208
  4. MINODRONIC ACID [Suspect]
     Active Substance: MINODRONIC ACID
     Route: 048
     Dates: start: 202202, end: 202203
  5. MINODRONIC ACID [Suspect]
     Active Substance: MINODRONIC ACID
     Route: 048
     Dates: start: 202304, end: 202308
  6. MINODRONIC ACID [Suspect]
     Active Substance: MINODRONIC ACID
     Route: 048
  7. EVENITY [Suspect]
     Active Substance: ROMOSOZUMAB-AQQG
     Indication: Osteoporosis
     Route: 058
     Dates: start: 20210208, end: 20220117
  8. EVENITY [Suspect]
     Active Substance: ROMOSOZUMAB-AQQG
     Route: 058
     Dates: start: 20240910, end: 20250311
  9. Exforge tablet [Concomitant]
     Indication: Hypertension
     Route: 065
  10. Metgluco tablet 500mg [Concomitant]
     Indication: Type 2 diabetes mellitus
     Dosage: 1 TABLET
     Route: 065
  11. Forxiga tablet 5mg [Concomitant]
     Indication: Type 2 diabetes mellitus
     Dosage: 1 TABLET
     Route: 065
  12. NESINA [Concomitant]
     Active Substance: ALOGLIPTIN BENZOATE
     Indication: Type 2 diabetes mellitus
     Route: 065
  13. LOXOPROFEN [Concomitant]
     Active Substance: LOXOPROFEN
     Indication: Product used for unknown indication
     Route: 065
  14. Olopatadine tablet 5mg [Concomitant]
     Indication: Product used for unknown indication
     Dosage: 5MG 2 TABLETS
     Route: 065
  15. Rybelsus tablet 7mg [Concomitant]
     Indication: Type 2 diabetes mellitus
     Dosage: 1 TABLET PER TIME
     Route: 065
  16. Alfacalcidol tablet 0.25ug [Concomitant]
     Indication: Osteoporosis
     Dosage: 1 TABLET
     Route: 065
     Dates: start: 20240319, end: 202408
  17. ELDECALCITOL [Concomitant]
     Active Substance: ELDECALCITOL
     Indication: Osteoporosis
     Route: 065
     Dates: start: 202009, end: 20220117
  18. ELDECALCITOL [Concomitant]
     Active Substance: ELDECALCITOL
     Route: 065
     Dates: start: 202202, end: 202203
  19. ELDECALCITOL [Concomitant]
     Active Substance: ELDECALCITOL
     Route: 065
     Dates: start: 202207, end: 202308
  20. TRICOR tablet 80mg [Concomitant]
     Indication: Hypercholesterolaemia
     Dosage: 1 TABLET 1 DAY
     Route: 065
  21. ABALOPARATIDE [Concomitant]
     Active Substance: ABALOPARATIDE
     Indication: Osteoporosis
     Route: 065
     Dates: start: 20240319, end: 202408

REACTIONS (6)
  - Coronary artery disease [Recovered/Resolved]
  - Acute myocardial infarction [Recovered/Resolved]
  - Coronary artery stenosis [Unknown]
  - Fall [Recovered/Resolved]
  - Foot fracture [Unknown]
  - Bone density decreased [Not Recovered/Not Resolved]

NARRATIVE: CASE EVENT DATE: 20230401
